FAERS Safety Report 16152793 (Version 2)
Quarter: 2019Q2

REPORT INFORMATION
  Report Type: Spontaneous
  Country: ES (occurrence: ES)
  Receive Date: 20190403
  Receipt Date: 20190409
  Transmission Date: 20190711
  Serious: Yes (Hospitalization, Other)
  Sender: FDA-Public Use
  Company Number: ES-ASTELLAS-2019US013934

PATIENT
  Age: 23 Year
  Sex: Male

DRUGS (1)
  1. AMPHOTERICIN B, LIPOSOME [Suspect]
     Active Substance: AMPHOTERICIN B
     Indication: PRODUCT USED FOR UNKNOWN INDICATION
     Dosage: 5 MG/KG, (350 MG/DAY) ONCE DAILY
     Route: 065
     Dates: start: 20190217, end: 20190228

REACTIONS (6)
  - Oxygen saturation decreased [Recovering/Resolving]
  - Tachypnoea [Recovering/Resolving]
  - Dyspnoea [Recovering/Resolving]
  - Aspergillus infection [Recovering/Resolving]
  - Carbon dioxide increased [Recovering/Resolving]
  - Aspergillus test positive [Recovering/Resolving]

NARRATIVE: CASE EVENT DATE: 2019
